FAERS Safety Report 5874311-7 (Version None)
Quarter: 2008Q3

REPORT INFORMATION
  Report Type: 
  Country: None (occurrence: None)
  Receive Date: 20080908
  Receipt Date: 20080827
  Transmission Date: 20090109
  Serious: Yes (Hospitalization, Other)
  Sender: FDA-Public Use
  Company Number: US-ELI_LILLY_AND_COMPANY-US200803002988

PATIENT
  Sex: Female
  Weight: 63.492 kg

DRUGS (3)
  1. ZYPREXA [Suspect]
     Dosage: 5 MG, UNK
     Dates: start: 19990901, end: 20040202
  2. GEODON [Concomitant]
     Dates: start: 20070101, end: 20080101
  3. WELLBUTRIN [Concomitant]
     Dates: start: 20071101

REACTIONS (3)
  - CORONARY ARTERY BYPASS [None]
  - DIABETES MELLITUS [None]
  - HAEMATEMESIS [None]
